FAERS Safety Report 7526842-1 (Version None)
Quarter: 2011Q2

REPORT INFORMATION
  Report Type: 
  Country: None (occurrence: None)
  Receive Date: 20110606
  Receipt Date: 20110524
  Transmission Date: 20111010
  Serious: Yes (Hospitalization)
  Sender: FDA-Public Use
  Company Number: PHHO2010JP02740

PATIENT
  Sex: Male
  Weight: 66 kg

DRUGS (28)
  1. CINAL [Concomitant]
     Indication: ASTHENOPIA
  2. PLACEBO [Suspect]
     Indication: PANCREATIC NEUROENDOCRINE TUMOUR
     Dosage: PLACEBO
     Route: 048
     Dates: start: 20090402, end: 20091217
  3. AMITRIPTYLINE HCL [Concomitant]
     Indication: HEADACHE
  4. KETOPROFEN [Concomitant]
     Indication: PAIN
  5. TESTOSTERONE ENANTHATE [Concomitant]
  6. RAD001 [Suspect]
     Dosage: UNK
     Route: 048
     Dates: start: 20110530
  7. ZOMETA [Concomitant]
     Indication: METASTASES TO BONE
     Dosage: UNK
     Dates: start: 20090407
  8. PANCREAZE [Concomitant]
  9. VITANEURIN [Concomitant]
     Indication: ASTHENOPIA
  10. FENTANYL CITRATE [Concomitant]
  11. METHYCOBAL [Concomitant]
     Indication: ASTHENOPIA
  12. OPSO DAINIPPON [Concomitant]
  13. ALDACTONE [Concomitant]
  14. RAD001 [Suspect]
     Indication: PANCREATIC NEUROENDOCRINE TUMOUR
     Dosage: 10 MG, DAILY
     Route: 048
     Dates: start: 20091218, end: 20100929
  15. ADETPHOS [Concomitant]
     Indication: ASTHENOPIA
  16. HALOPERIDOL [Concomitant]
     Dosage: UNK
     Dates: start: 20100622
  17. ZOLPIDEM [Concomitant]
  18. PENTAZOCINE LACTATE [Concomitant]
  19. CABERGOLINE [Concomitant]
     Dosage: UNK
     Dates: start: 20090627
  20. RAD001 [Suspect]
     Dosage: 10 MG, DAILY
     Route: 048
     Dates: start: 20101006, end: 20110515
  21. PANCREATIN [Concomitant]
  22. ROCALTROL [Concomitant]
  23. NOVORAPID [Concomitant]
     Indication: DIABETES MELLITUS
  24. SELBEX [Concomitant]
     Indication: GASTRITIS PROPHYLAXIS
  25. BASEN [Concomitant]
     Indication: DIABETES MELLITUS
  26. MUCOSTA [Concomitant]
     Dosage: UNK
     Dates: start: 20100120
  27. SANDOSTATIN LAR [Concomitant]
     Indication: PANCREATIC NEUROENDOCRINE TUMOUR
     Dosage: UNK
     Dates: start: 20080823
  28. LOXOPROFEN [Concomitant]
     Indication: PAIN

REACTIONS (9)
  - METASTASES TO BONE [None]
  - ABDOMINAL PAIN [None]
  - SPINAL COMPRESSION FRACTURE [None]
  - ABDOMINAL PAIN LOWER [None]
  - MUSCULOSKELETAL PAIN [None]
  - VOMITING [None]
  - PAIN [None]
  - DEHYDRATION [None]
  - METASTASES TO LYMPH NODES [None]
